FAERS Safety Report 6527026-6 (Version None)
Quarter: 2010Q1

REPORT INFORMATION
  Report Type: 
  Country: None (occurrence: None)
  Receive Date: 20100105
  Receipt Date: 20091223
  Transmission Date: 20100710
  Serious: Yes (Other)
  Sender: FDA-Public Use
  Company Number: US-CELGENEUS-163-21880-09120594

PATIENT
  Sex: Male

DRUGS (9)
  1. REVLIMID [Suspect]
     Indication: MULTIPLE MYELOMA
     Route: 048
     Dates: start: 20090722
  2. PLENDIL [Concomitant]
     Indication: HYPERTENSION
     Route: 065
  3. COSOPT [Concomitant]
     Indication: GLAUCOMA
     Route: 065
  4. PILOCARPINE HYDROCHLORIDE [Concomitant]
     Indication: GLAUCOMA
     Route: 065
  5. ALPHAGAN [Concomitant]
     Indication: GLAUCOMA
     Route: 065
  6. XALATAN [Concomitant]
     Indication: GLAUCOMA
     Route: 065
  7. CLOTRIMAZOLE [Concomitant]
     Indication: RASH
     Route: 065
  8. AMBIEN [Concomitant]
     Indication: INSOMNIA
     Route: 065
  9. COUMADIN [Concomitant]
     Indication: THROMBOSIS PROPHYLAXIS
     Route: 065

REACTIONS (3)
  - ATRIAL FIBRILLATION [None]
  - FATIGUE [None]
  - GLUCOSE TOLERANCE IMPAIRED [None]
